FAERS Safety Report 14406947 (Version 1)
Quarter: 2018Q1

REPORT INFORMATION
  Report Type: Spontaneous
  Country: US (occurrence: US)
  Receive Date: 20180118
  Receipt Date: 20180118
  Transmission Date: 20180509
  Serious: Yes (Disabling, Other)
  Sender: FDA-Public Use
  Company Number: None

PATIENT
  Age: 64 Year
  Sex: Female
  Weight: 62.14 kg

DRUGS (8)
  1. CIPRO [Suspect]
     Active Substance: CIPROFLOXACIN HYDROCHLORIDE
     Indication: URINARY TRACT INFECTION
     Dates: start: 20150925, end: 20150927
  2. VITAMIN D [Concomitant]
     Active Substance: CHOLECALCIFEROL
  3. DHEA [Concomitant]
     Active Substance: PRASTERONE
  4. GLUTATHIONE [Concomitant]
     Active Substance: GLUTATHIONE
  5. ESTRIOL VAGINAL CREAM [Concomitant]
  6. PROGESTERONE CREAM [Concomitant]
     Active Substance: PROGESTERONE
  7. MAGNESIUM [Concomitant]
     Active Substance: MAGNESIUM
  8. METHYL B12 [Concomitant]

REACTIONS (7)
  - Toxicity to various agents [None]
  - Muscle spasms [None]
  - Asthenia [None]
  - Headache [None]
  - Malaise [None]
  - Feeling abnormal [None]
  - Shoulder operation [None]

NARRATIVE: CASE EVENT DATE: 20150925
